FAERS Safety Report 8622852-1 (Version None)
Quarter: 2012Q3

REPORT INFORMATION
  Report Type: 
  Country: None (occurrence: None)
  Receive Date: 20120827
  Receipt Date: 20120820
  Transmission Date: 20120928
  Serious: Yes (Other)
  Sender: FDA-Public Use
  Company Number: PHHY2012CA064297

PATIENT
  Sex: Female

DRUGS (4)
  1. SANDOSTATIN [Suspect]
     Indication: NEUROENDOCRINE TUMOUR
     Dosage: UNK UKN, UNK
     Route: 058
  2. SANDOSTATIN LAR [Suspect]
     Dosage: 30 MG, EVERY 3 WEEKS
     Route: 030
     Dates: start: 20120704
  3. SANDOSTATIN LAR [Suspect]
     Indication: NEUROENDOCRINE TUMOUR
     Dosage: 30 MG, EVERY 4 WEEKS
     Route: 030
     Dates: start: 20120704
  4. SANDOSTATIN [Suspect]
     Dosage: EVERY 12 HRS
     Route: 058
     Dates: start: 20120814

REACTIONS (7)
  - DIARRHOEA [None]
  - DIZZINESS [None]
  - PAIN [None]
  - PAIN IN EXTREMITY [None]
  - MUSCLE SPASMS [None]
  - FLUSHING [None]
  - FATIGUE [None]
